FAERS Safety Report 14874505 (Version 2)
Quarter: 2018Q3

REPORT INFORMATION
  Report Type: Spontaneous
  Country: US (occurrence: US)
  Receive Date: 20180510
  Receipt Date: 20180727
  Transmission Date: 20181010
  Serious: Yes (Other)
  Sender: FDA-Public Use
  Company Number: US-BAYER-2018-085822

PATIENT
  Age: 33 Year
  Sex: Female
  Weight: 86.62 kg

DRUGS (1)
  1. MIRENA [Suspect]
     Active Substance: LEVONORGESTREL
     Indication: CONTRACEPTION
     Dosage: 20 MCG/24HR, CONT
     Route: 015
     Dates: start: 20180406, end: 20180425

REACTIONS (4)
  - Drug ineffective [None]
  - Pregnancy with contraceptive device [None]
  - Abortion spontaneous [None]
  - Haemorrhage in pregnancy [None]

NARRATIVE: CASE EVENT DATE: 20180423
